FAERS Safety Report 17490069 (Version 1)
Quarter: 2020Q1

REPORT INFORMATION
  Report Type: Spontaneous
  Country: US (occurrence: US)
  Receive Date: 20200303
  Receipt Date: 20200303
  Transmission Date: 20200409
  Serious: No
  Sender: FDA-Public Use
  Company Number: US-AKORN PHARMACEUTICALS-2019AKN01603

PATIENT
  Sex: Male
  Weight: 66 kg

DRUGS (3)
  1. CLARAVIS [Suspect]
     Active Substance: ISOTRETINOIN
     Indication: ACNE CYSTIC
     Dosage: 40 MG, 1X/DAY AT NIGHT
     Dates: start: 20190618, end: 20190703
  2. MYORISAN [Suspect]
     Active Substance: ISOTRETINOIN
     Dosage: 30 MG, 1X/DAY, IN THE MORNING
     Route: 048
     Dates: start: 20190618, end: 20190703
  3. MYORISAN [Suspect]
     Active Substance: ISOTRETINOIN
     Indication: ACNE CYSTIC
     Dosage: UNK
     Route: 048
     Dates: start: 20190516, end: 20190617

REACTIONS (2)
  - Dry skin [Recovering/Resolving]
  - Eczema nummular [Recovering/Resolving]

NARRATIVE: CASE EVENT DATE: 2019
